FAERS Safety Report 9253780 (Version 2)
Quarter: 2013Q3

REPORT INFORMATION
  Report Type: Spontaneous
  Country: US (occurrence: US)
  Receive Date: 20130425
  Receipt Date: 20130704
  Transmission Date: 20140515
  Serious: No
  Sender: FDA-Public Use
  Company Number: US-PFIZER INC-2013128369

PATIENT
  Sex: Male

DRUGS (1)
  1. LYRICA [Suspect]
     Indication: SURGERY
     Dosage: UNK

REACTIONS (2)
  - Off label use [Unknown]
  - Weight increased [Unknown]
